FAERS Safety Report 20319171 (Version 4)
Quarter: 2022Q2

REPORT INFORMATION
  Report Type: Spontaneous
  Country: US (occurrence: US)
  Receive Date: 20220110
  Receipt Date: 20220628
  Transmission Date: 20220721
  Serious: No
  Sender: FDA-Public Use
  Company Number: US-PFIZER INC-202101732759

PATIENT
  Age: 62 Year
  Sex: Female

DRUGS (4)
  1. XELJANZ [Suspect]
     Active Substance: TOFACITINIB CITRATE
     Indication: Rheumatoid arthritis
     Dosage: 5 MG, 2X/DAY
     Route: 048
     Dates: start: 2017
  2. XELJANZ [Suspect]
     Active Substance: TOFACITINIB CITRATE
     Dosage: 5 MG, ALTERNATE DAY (EVERY OTHER DAY)
     Route: 048
     Dates: start: 2017
  3. XELJANZ [Suspect]
     Active Substance: TOFACITINIB CITRATE
     Dosage: 5 MG, 1X/DAY
     Route: 048
     Dates: start: 202112
  4. XELJANZ [Suspect]
     Active Substance: TOFACITINIB CITRATE
     Dosage: 5 MG, CYCLIC (ONCE EVERY 2 DAYS)
     Route: 048
     Dates: start: 2017

REACTIONS (11)
  - Therapeutic product effect incomplete [Unknown]
  - Intentional product misuse [Unknown]
  - Product dose omission in error [Unknown]
  - Product dose omission issue [Unknown]
  - Condition aggravated [Unknown]
  - Crying [Unknown]
  - Depressed mood [Unknown]
  - Fatigue [Unknown]
  - Insomnia [Unknown]
  - Memory impairment [Unknown]
  - Stress [Unknown]

NARRATIVE: CASE EVENT DATE: 20170101
